FAERS Safety Report 20540610 (Version 1)
Quarter: 2022Q1

REPORT INFORMATION
  Report Type: Spontaneous
  Country: BR (occurrence: BR)
  Receive Date: 20220302
  Receipt Date: 20220302
  Transmission Date: 20220423
  Serious: Yes (Other)
  Sender: FDA-Public Use
  Company Number: BR-BAYER-2021A240556

PATIENT
  Age: 76 Year
  Sex: Female

DRUGS (1)
  1. XARELTO [Suspect]
     Active Substance: RIVAROXABAN
     Indication: Angiopathy
     Dosage: 50 MG
     Route: 048
     Dates: start: 20190320

REACTIONS (3)
  - Venous occlusion [Recovering/Resolving]
  - Overdose [Unknown]
  - Off label use [Unknown]
